FAERS Safety Report 4737937-X (Version None)
Quarter: 2005Q3

REPORT INFORMATION
  Report Type: 
  Country: None (occurrence: None)
  Receive Date: 20050805
  Receipt Date: 20050805
  Transmission Date: 20060218
  Serious: Yes (Other)
  Sender: FDA-Public Use
  Company Number: None

PATIENT
  Age: 49 Year
  Sex: Female
  Weight: 68.0396 kg

DRUGS (2)
  1. LIDOCAINE HYDROCHLORIDE 1% INJ [Suspect]
     Indication: BIOPSY BREAST
     Dosage: 1 CC - PERCUTAN
     Route: 003
  2. LIDOCAINE HCL 1% AND EPINEPHRINE 1:100,000 INJ ABBOTT [Suspect]
     Indication: BIOPSY BREAST
     Dosage: 3 - SEC X 3 PER CUTAN
     Route: 003

REACTIONS (4)
  - ANAESTHETIC COMPLICATION [None]
  - DRUG INEFFECTIVE [None]
  - PAIN [None]
  - PROCEDURAL COMPLICATION [None]
